FAERS Safety Report 12543330 (Version 1)
Quarter: 2016Q3

REPORT INFORMATION
  Report Type: Spontaneous
  Country: US (occurrence: US)
  Receive Date: 20160711
  Receipt Date: 20160711
  Transmission Date: 20161109
  Serious: Yes (Death, Hospitalization, Other)
  Sender: FDA-Public Use
  Company Number: US-DRREDDYS-USA/USA/16/0081226

PATIENT
  Sex: Female

DRUGS (4)
  1. ASPIRIN. [Concomitant]
     Active Substance: ASPIRIN
     Indication: PRODUCT USED FOR UNKNOWN INDICATION
     Route: 065
     Dates: end: 201603
  2. LEVOFLOXACIN TABLETS 750 MG [Suspect]
     Active Substance: LEVOFLOXACIN
     Indication: KIDNEY INFECTION
     Route: 048
     Dates: start: 20160311
  3. LISINOPRIL. [Concomitant]
     Active Substance: LISINOPRIL
     Indication: PRODUCT USED FOR UNKNOWN INDICATION
     Route: 065
     Dates: end: 201603
  4. CYMBALTA [Concomitant]
     Active Substance: DULOXETINE HYDROCHLORIDE
     Indication: PRODUCT USED FOR UNKNOWN INDICATION
     Route: 065
     Dates: end: 201603

REACTIONS (6)
  - Respiratory failure [Fatal]
  - Renal failure [Fatal]
  - Speech disorder [Unknown]
  - Seizure [Unknown]
  - Sensory loss [Unknown]
  - Asthenia [Unknown]
